FAERS Safety Report 7020559-8 (Version None)
Quarter: 2010Q3

REPORT INFORMATION
  Report Type: 
  Country: None (occurrence: None)
  Receive Date: 20100927
  Receipt Date: 20100913
  Transmission Date: 20110219
  Serious: Yes (Other)
  Sender: FDA-Public Use
  Company Number: 687868

PATIENT
  Age: 51 Year
  Sex: Male
  Weight: 68 kg

DRUGS (11)
  1. PRECEDEX [Suspect]
     Indication: SEDATIVE THERAPY
     Dosage: SEE IMAGE
     Route: 042
     Dates: start: 20090224, end: 20090224
  2. PRECEDEX [Suspect]
     Indication: SEDATIVE THERAPY
     Dosage: SEE IMAGE
     Route: 042
     Dates: start: 20090224, end: 20090224
  3. PRECEDEX [Suspect]
     Indication: SEDATIVE THERAPY
     Dosage: SEE IMAGE
     Route: 042
     Dates: start: 20090224, end: 20090224
  4. PRECEDEX [Suspect]
     Indication: SEDATIVE THERAPY
     Dosage: SEE IMAGE
     Route: 042
     Dates: start: 20090224, end: 20090224
  5. PRECEDEX [Suspect]
     Indication: SEDATIVE THERAPY
     Dosage: SEE IMAGE
     Route: 042
     Dates: start: 20090224, end: 20090224
  6. SEVOFLURANE [Concomitant]
  7. MIDAZOLAM HYDROCHLORIDE [Concomitant]
  8. FENTANYL CITRATE INJ, USP CII (FENTANYL CITRATE) [Concomitant]
  9. ROCURONIUM BROMIDE [Concomitant]
  10. FAMOTIDINE [Concomitant]
  11. TELMISARTAN [Concomitant]

REACTIONS (2)
  - BLOOD PRESSURE SYSTOLIC DECREASED [None]
  - ELECTROCARDIOGRAM ST SEGMENT ELEVATION [None]
